FAERS Safety Report 9072512 (Version 1)
Quarter: 2013Q1

REPORT INFORMATION
  Report Type: Report from Study
  Country: US (occurrence: US)
  Receive Date: 20130129
  Receipt Date: 20130129
  Transmission Date: 20140127
  Serious: No
  Sender: FDA-Public Use
  Company Number: US-ABBOTT-12P-163-0936133-00

PATIENT
  Age: 36 Year
  Sex: Female

DRUGS (13)
  1. HUMIRA 40 MG/ 0.8 ML PRE-FILLED SYRINGE [Suspect]
     Indication: CROHN^S DISEASE
     Dates: start: 20120124
  2. EFFEXOR [Concomitant]
     Indication: DEPRESSION
     Dosage: 75MG THREE TABLETS DAILY
  3. WELLBUTRIN [Concomitant]
     Indication: DEPRESSION
     Dosage: DAILY
  4. LEVOXYL [Concomitant]
     Indication: HYPOTHYROIDISM
     Dosage: 0.75MG DAILY
  5. ELMIRON [Concomitant]
     Indication: CYSTITIS INTERSTITIAL
     Dosage: TWO TABLETS IN THE AM
  6. ELMIRON [Concomitant]
     Dosage: TWO TABLETS IN THE PM
  7. ALLEGRA [Concomitant]
     Indication: HYPERSENSITIVITY
     Dosage: 180MG DAILY
  8. SINGULAR [Concomitant]
     Indication: HYPERSENSITIVITY
     Dosage: DAILY
  9. CLONAZEPAM [Concomitant]
     Indication: ANXIETY
     Dosage: AT BEDTIME
  10. VIT D [Concomitant]
     Indication: SUPPLEMENTATION THERAPY
     Dosage: WEEKLY
  11. VIT D [Concomitant]
     Indication: VITAMIN D DEFICIENCY
  12. VIT B [Concomitant]
     Indication: SUPPLEMENTATION THERAPY
     Dosage: DAILY
  13. PROTONIX [Concomitant]
     Indication: GASTROOESOPHAGEAL REFLUX DISEASE

REACTIONS (9)
  - Sinus disorder [Not Recovered/Not Resolved]
  - Colitis [Not Recovered/Not Resolved]
  - Pain [Not Recovered/Not Resolved]
  - Pain [Not Recovered/Not Resolved]
  - Sinus congestion [Not Recovered/Not Resolved]
  - Oropharyngeal pain [Not Recovered/Not Resolved]
  - Sneezing [Not Recovered/Not Resolved]
  - Throat irritation [Not Recovered/Not Resolved]
  - Cough [Not Recovered/Not Resolved]
